FAERS Safety Report 8299438-4 (Version None)
Quarter: 2012Q2

REPORT INFORMATION
  Report Type: 
  Country: None (occurrence: None)
  Receive Date: 20120419
  Receipt Date: 20120411
  Transmission Date: 20120825
  Serious: Yes (Other)
  Sender: FDA-Public Use
  Company Number: US-ALLERGAN-1205206US

PATIENT
  Age: 32 Year
  Sex: Female

DRUGS (2)
  1. CELEXA [Concomitant]
     Indication: OBSESSIVE-COMPULSIVE DISORDER
     Dosage: 40 MG, QD
     Route: 048
     Dates: start: 20080101
  2. LATISSE [Suspect]
     Indication: GROWTH OF EYELASHES
     Dosage: 2 GTT, QHS
     Route: 061
     Dates: start: 20120301, end: 20120301

REACTIONS (2)
  - CONJUNCTIVAL HAEMORRHAGE [None]
  - INCORRECT DOSE ADMINISTERED [None]
